FAERS Safety Report 8143748 (Version 3)
Quarter: 2014Q3

REPORT INFORMATION
  Report Type: Report from Study
  Country: NL (occurrence: NL)
  Receive Date: 20110920
  Receipt Date: 20140919
  Transmission Date: 20150326
  Serious: Yes (Other)
  Sender: FDA-Public Use
  Company Number: PHHO2011NL15175

PATIENT
  Age: 43 Year
  Sex: Male

DRUGS (8)
  1. CERTICAN [Suspect]
     Active Substance: EVEROLIMUS
     Indication: RENAL TRANSPLANT
     Dosage: 1.5 MG, BID
     Dates: end: 20110902
  2. MYFORTIC [Concomitant]
     Active Substance: MYCOPHENOLATE SODIUM
     Dosage: 720 MG, BID
     Dates: start: 20110302, end: 20110831
  3. COTRIMOXAZOLE [Concomitant]
     Active Substance: SULFAMETHOXAZOLE\TRIMETHOPRIM
     Dosage: 400 MG, UNK
  4. METOPROLOL [Concomitant]
     Active Substance: METOPROLOL
     Dosage: 70 MG, UNK
  5. PREDNISOLONE. [Concomitant]
     Active Substance: PREDNISOLONE
     Dosage: 10 MG, UNK
  6. VALCYTE [Concomitant]
     Active Substance: VALGANCICLOVIR HYDROCHLORIDE
     Dosage: 450 UKN, BID
  7. OMEPRAZOLE. [Concomitant]
     Active Substance: OMEPRAZOLE
     Dosage: 20 MG, BID
  8. PROGRAF [Suspect]
     Active Substance: TACROLIMUS\TACROLIMUS ANHYDROUS
     Indication: RENAL TRANSPLANT
     Dosage: 8 MG, BID
     Dates: start: 20110302

REACTIONS (1)
  - Pulmonary embolism [Recovered/Resolved]

NARRATIVE: CASE EVENT DATE: 20110906
